FAERS Safety Report 21175943 (Version 1)
Quarter: 2022Q3

REPORT INFORMATION
  Report Type: Spontaneous
  Country: JP (occurrence: JP)
  Receive Date: 20220805
  Receipt Date: 20220805
  Transmission Date: 20221026
  Serious: Yes (Other)
  Sender: FDA-Public Use
  Company Number: JP-MSD-M2022-31148

PATIENT
  Age: 38 Year
  Sex: Male

DRUGS (2)
  1. KEYTRUDA [Suspect]
     Active Substance: PEMBROLIZUMAB
     Indication: Non-small cell lung cancer stage IIIB
     Dosage: 200 MILLIGRAM, Q3W
     Route: 041
     Dates: start: 202104
  2. KEYTRUDA [Suspect]
     Active Substance: PEMBROLIZUMAB
     Dosage: 200 MILLIGRAM, Q3W
     Route: 041
     Dates: start: 2022

REACTIONS (1)
  - Pneumothorax [Unknown]
